FAERS Safety Report 8264829-4 (Version None)
Quarter: 2012Q2

REPORT INFORMATION
  Report Type: 
  Country: None (occurrence: None)
  Receive Date: 20120406
  Receipt Date: 20120330
  Transmission Date: 20120825
  Serious: Yes (Hospitalization)
  Sender: FDA-Public Use
  Company Number: IT-JNJFOC-20120309278

PATIENT
  Sex: Male
  Weight: 70 kg

DRUGS (2)
  1. PALIPERIDONE [Suspect]
     Indication: SCHIZOPHRENIA
     Route: 030
     Dates: start: 20111026
  2. DELORAZEPAM [Concomitant]
     Indication: INSOMNIA

REACTIONS (1)
  - DELUSIONAL DISORDER, UNSPECIFIED TYPE [None]
